FAERS Safety Report 9891303 (Version 1)
Quarter: 2014Q1

REPORT INFORMATION
  Report Type: Spontaneous
  Country: US (occurrence: None)
  Receive Date: 20140211
  Receipt Date: 20140211
  Transmission Date: 20141002
  Serious: Yes (Hospitalization)
  Sender: FDA-Public Use
  Company Number: None

PATIENT
  Age: 50 Year
  Sex: Female

DRUGS (2)
  1. IBUPROFEN [Suspect]
  2. LITHIUM [Suspect]
     Indication: PAIN

REACTIONS (5)
  - Toxicity to various agents [None]
  - Renal failure acute [None]
  - Confusional state [None]
  - Tremor [None]
  - Drug level above therapeutic [None]
